FAERS Safety Report 16467862 (Version 1)
Quarter: 2019Q2

REPORT INFORMATION
  Report Type: Spontaneous
  Country: GB (occurrence: GB)
  Receive Date: 20190624
  Receipt Date: 20190624
  Transmission Date: 20190711
  Serious: Yes (Other)
  Sender: FDA-Public Use
  Company Number: GB-ACCORD-134579

PATIENT
  Age: 80 Year
  Sex: Female
  Weight: 53 kg

DRUGS (9)
  1. IRON [Concomitant]
     Active Substance: IRON
     Dates: start: 20170920
  2. LOSARTAN. [Concomitant]
     Active Substance: LOSARTAN
     Dosage: BOOK BLOOD TEST FOR TWO WEEKS AFTER STARTING
     Dates: start: 20170901
  3. LORATADINE. [Concomitant]
     Active Substance: LORATADINE
     Dates: start: 20170918
  4. AMLODIPINE [Concomitant]
     Active Substance: AMLODIPINE BESYLATE
     Dates: start: 20170901
  5. ATORVASTATIN/ATORVASTATIN CALCIUM [Suspect]
     Active Substance: ATORVASTATIN CALCIUM
     Indication: PRODUCT USED FOR UNKNOWN INDICATION
     Route: 048
  6. PHENYTOIN. [Concomitant]
     Active Substance: PHENYTOIN
     Dosage: 50 AND 100MG
     Dates: start: 20170901
  7. LEVOTHYROXINE. [Concomitant]
     Active Substance: LEVOTHYROXINE
     Dosage: MORNING. 50 AND 100MG.
     Dates: start: 20170901
  8. ROSUVASTATIN/ROSUVASTATIN CALCIUM [Concomitant]
     Dates: start: 20171108
  9. CLOPIDOGREL [Concomitant]
     Active Substance: CLOPIDOGREL BISULFATE
     Dosage: LONG-TERM
     Dates: start: 20170901

REACTIONS (4)
  - Initial insomnia [Unknown]
  - Nightmare [Unknown]
  - Musculoskeletal stiffness [Unknown]
  - Middle insomnia [Unknown]
